FAERS Safety Report 5086454-9 (Version None)
Quarter: 2006Q3

REPORT INFORMATION
  Report Type: 
  Country: None (occurrence: None)
  Receive Date: 20060703
  Receipt Date: 20050913
  Transmission Date: 20061208
  Serious: No
  Sender: FDA-Public Use
  Company Number: 2005S1009111

PATIENT
  Age: 36 Year
  Sex: Female

DRUGS (5)
  1. CLOZAPINE [Suspect]
     Indication: SCHIZOPHRENIA
     Dosage: 500 MG;HS;PO
     Route: 048
     Dates: start: 20040901
  2. FLUOXETINE HYDROCHLORIDE [Concomitant]
  3. VALPROATE SODIUM [Concomitant]
  4. BENZTROPINE MESYLATE [Concomitant]
  5. ATORVASTATIN CALCIUM [Concomitant]

REACTIONS (1)
  - GRANULOCYTOPENIA [None]
